FAERS Safety Report 8478675 (Version 4)
Quarter: 2014Q2

REPORT INFORMATION
  Report Type: Spontaneous
  Country: US (occurrence: US)
  Receive Date: 20120327
  Receipt Date: 20140516
  Transmission Date: 20141212
  Serious: Yes (Hospitalization, Other)
  Sender: FDA-Public Use
  Company Number: US-PFIZER INC-2012073642

PATIENT
  Age: 29 Year
  Sex: Female
  Weight: 81.63 kg

DRUGS (6)
  1. LYRICA [Suspect]
     Dosage: 300 MG, 3X/DAY
     Route: 048
  2. ALPRAZOLAM [Concomitant]
     Dosage: UNK
  3. OXYCODONE [Concomitant]
     Dosage: UNK
  4. PRAZOSIN [Concomitant]
     Dosage: UNK
  5. CELEXA [Concomitant]
     Dosage: UNK
  6. OPANA [Concomitant]
     Dosage: UNK

REACTIONS (2)
  - Musculoskeletal disorder [Unknown]
  - Aphonia [Unknown]
